FAERS Safety Report 9336645 (Version 1)
Quarter: 2013Q2

REPORT INFORMATION
  Report Type: Spontaneous
  Country: LT (occurrence: LT)
  Receive Date: 20130607
  Receipt Date: 20130607
  Transmission Date: 20140414
  Serious: Yes (Life-Threatening, Other)
  Sender: FDA-Public Use
  Company Number: PHHY2013LT056930

PATIENT
  Age: 57 Year
  Sex: Male

DRUGS (4)
  1. CICLOSPORIN [Suspect]
     Indication: IMMUNOSUPPRESSION
     Dosage: 250 MG, UNK
  2. CICLOSPORIN [Suspect]
     Dosage: 125 MG, UNK
  3. MYCOPHENOLATE MOFETIL [Suspect]
     Indication: IMMUNOSUPPRESSION
     Dosage: 2 G, UNK
  4. METHYLPREDNISOLONE [Suspect]
     Indication: IMMUNOSUPPRESSION
     Dosage: 6 MG, UNK

REACTIONS (9)
  - Renal abscess [Recovered/Resolved]
  - Sepsis [Recovering/Resolving]
  - Hydronephrosis [Recovered/Resolved]
  - Pyelonephritis [Recovered/Resolved]
  - Kaposi^s sarcoma [Recovering/Resolving]
  - Human herpesvirus 8 infection [Unknown]
  - Rash macular [Recovering/Resolving]
  - Complications of transplanted kidney [Recovered/Resolved]
  - Lymphadenopathy [Recovering/Resolving]
